FAERS Safety Report 16062030 (Version 2)
Quarter: 2022Q3

REPORT INFORMATION
  Report Type: Spontaneous
  Country: SI (occurrence: SI)
  Receive Date: 20190312
  Receipt Date: 20220701
  Transmission Date: 20221027
  Serious: Yes (Death, Hospitalization, Other)
  Sender: FDA-Public Use
  Company Number: SI-ALKEM LABORATORIES LIMITED-SI-ALKEM-2019-01974

PATIENT
  Age: 30 Year
  Sex: Female

DRUGS (2)
  1. DULOXETINE HYDROCHLORIDE [Suspect]
     Active Substance: DULOXETINE HYDROCHLORIDE
     Indication: Depression
     Dosage: UNK
     Route: 048
  2. VENLAFAXINE [Suspect]
     Active Substance: VENLAFAXINE HYDROCHLORIDE
     Indication: Depression
     Dosage: UNK
     Route: 048

REACTIONS (6)
  - Serotonin syndrome [Fatal]
  - Metabolic acidosis [Fatal]
  - Cardiac failure [Fatal]
  - Completed suicide [Fatal]
  - Overdose [Fatal]
  - Toxicity to various agents [Fatal]
